FAERS Safety Report 26048940 (Version 1)
Quarter: 2025Q4

REPORT INFORMATION
  Report Type: Spontaneous
  Country: CA (occurrence: CA)
  Receive Date: 20251115
  Receipt Date: 20251115
  Transmission Date: 20260118
  Serious: Yes (Other)
  Sender: CELLTRION
  Company Number: CA-CELLTRION INC.-2025CA030851

PATIENT

DRUGS (6)
  1. INFLIXIMAB [Suspect]
     Active Substance: INFLIXIMAB
     Indication: Colitis ulcerative
     Dosage: LOADING - 10 MG/KG WEEK 0/
     Route: 042
     Dates: start: 20250804
  2. INFLIXIMAB [Suspect]
     Active Substance: INFLIXIMAB
     Dosage: LOADING - 10 MG/KG WEEK 2
     Route: 042
     Dates: start: 20250825
  3. INFLIXIMAB [Suspect]
     Active Substance: INFLIXIMAB
     Dosage: WEEK 6 INFUSION / LOADING - 10 MG/KG - IV  (INTRAVENOUS) 0.2.6
     Route: 042
     Dates: start: 20250924
  4. INFLIXIMAB [Suspect]
     Active Substance: INFLIXIMAB
     Dosage: MAINTENANCE - 10 MG/KG - IV  (INTRAVENOUS) EVERY 6 WEEKS
     Route: 042
     Dates: start: 20251028
  5. INFLIXIMAB [Suspect]
     Active Substance: INFLIXIMAB
     Dosage: MAINTENANCE - 10 MG/KG - IV  (INTRAVENOUS) EVERY 4 WEEKS
     Route: 042
  6. PREDNISONE [Concomitant]
     Active Substance: PREDNISONE
     Indication: Crohn^s disease
     Dosage: ON TAPERING PREDNISONE, CURRENTLY AT 30 MG AS OF YESTERDAY

REACTIONS (5)
  - Frequent bowel movements [Unknown]
  - Proctalgia [Unknown]
  - Inappropriate schedule of product administration [Unknown]
  - Off label use [Unknown]
  - Inappropriate schedule of product administration [Unknown]

NARRATIVE: CASE EVENT DATE: 20250804
